FAERS Safety Report 21395832 (Version 2)
Quarter: 2023Q1

REPORT INFORMATION
  Report Type: Spontaneous
  Country: CA (occurrence: CA)
  Receive Date: 20220930
  Receipt Date: 20230125
  Transmission Date: 20230417
  Serious: Yes (Life-Threatening, Hospitalization, Other)
  Sender: FDA-Public Use
  Company Number: CA-SA-SAC20220928001899

PATIENT
  Age: 83 Year
  Sex: Female
  Weight: 62 kg

DRUGS (23)
  1. LOVENOX [Suspect]
     Active Substance: ENOXAPARIN SODIUM
     Indication: Atrial fibrillation
     Dosage: 60 MG, BID
     Route: 058
     Dates: start: 20220201, end: 20220209
  2. ACETAMINOPHEN [Concomitant]
     Active Substance: ACETAMINOPHEN
     Dosage: 487.5 TO 975 MG Q6H PRN
     Route: 048
  3. ASPIRIN [Concomitant]
     Active Substance: ASPIRIN
     Dosage: 81 MG, QD
     Route: 048
     Dates: start: 20050729
  4. ATORVASTATIN [Concomitant]
     Active Substance: ATORVASTATIN
     Dosage: 80 MG, QD
     Route: 048
  5. BISACODYL [Concomitant]
     Active Substance: BISACODYL
     Dosage: 10 MG PR Q3D PRN
     Route: 065
  6. CANNABIDIOL\HERBALS [Concomitant]
     Active Substance: CANNABIDIOL\HERBALS
     Dosage: UNK, PRN
  7. DIMENHYDRINATE [Concomitant]
     Active Substance: DIMENHYDRINATE
     Dosage: 25 MG SC Q4H PRN
     Route: 058
  8. HYDROCORTISONE [Concomitant]
     Active Substance: HYDROCORTISONE
     Dosage: UNK, BID
     Route: 061
  9. HYDROMORPHONE [Concomitant]
     Active Substance: HYDROMORPHONE
     Dosage: 1 MG, 6ID
     Route: 048
  10. HYDROMORPHONE [Concomitant]
     Active Substance: HYDROMORPHONE
     Dosage: 1 MG, PRN
     Route: 058
  11. LORAZEPAM [Concomitant]
     Active Substance: LORAZEPAM
     Dosage: 1 MG SL OR 1 MG PO Q4H PRN
     Route: 060
  12. LORAZEPAM [Concomitant]
     Active Substance: LORAZEPAM
     Dosage: 1 MG SL OR 1 MG PO Q4H PRN
     Route: 048
  13. LORAZEPAM [Concomitant]
     Active Substance: LORAZEPAM
     Dosage: 0.5 MG SL AT BEDTIME PRN
     Route: 060
  14. MAGNESIUM OXIDE [Concomitant]
     Active Substance: MAGNESIUM OXIDE
     Dosage: 40 MG, QD
     Route: 048
  15. METOPROLOL [Concomitant]
     Active Substance: METOPROLOL
     Dosage: 37.5 MG, BID
     Route: 048
  16. NITROGLYCERIN [Concomitant]
     Active Substance: NITROGLYCERIN
     Dosage: 1 DF, QD
     Route: 061
  17. OXAZEPAM [Concomitant]
     Active Substance: OXAZEPAM
     Dosage: 30 MG PO AT BEDTIME PRN
     Route: 048
  18. PANTOPRAZOLE [Concomitant]
     Active Substance: PANTOPRAZOLE
     Dosage: 40 MG, QD
     Route: 048
  19. PLAVIX [Concomitant]
     Active Substance: CLOPIDOGREL BISULFATE
     Dosage: 75 MG, QD
     Route: 048
     Dates: start: 20160326
  20. RAMIPRIL [Concomitant]
     Active Substance: RAMIPRIL
     Dosage: 2.5 MG, BID
     Route: 048
  21. XARELTO [Concomitant]
     Active Substance: RIVAROXABAN
     Dosage: 15 MG, QD
     Route: 048
     Dates: start: 20170704, end: 20220131
  22. THYROID [Concomitant]
     Active Substance: LEVOTHYROXINE\LIOTHYRONINE
     Dosage: 90 MG, QD
     Route: 048
  23. NITROGLYCERIN [Concomitant]
     Active Substance: NITROGLYCERIN
     Dosage: 0.4 MG, PRN (1 SPRAY SL Q5MINUTES)

REACTIONS (4)
  - Device embolisation [Recovered/Resolved]
  - Intra-abdominal haemorrhage [Recovered/Resolved]
  - Haematoma [Recovered/Resolved]
  - Transfusion [Recovered/Resolved]

NARRATIVE: CASE EVENT DATE: 20220209
